FAERS Safety Report 23581075 (Version 2)
Quarter: 2024Q3

REPORT INFORMATION
  Report Type: Spontaneous
  Country: CZ (occurrence: CZ)
  Receive Date: 20240229
  Receipt Date: 20240720
  Transmission Date: 20241016
  Serious: Yes (Other)
  Sender: TEVA
  Company Number: None

PATIENT
  Age: 26 Year
  Sex: Female

DRUGS (2)
  1. AJOVY [Suspect]
     Active Substance: FREMANEZUMAB-VFRM
     Indication: Migraine
     Dosage: AJOVY 225MG INJ SOL ISP
     Route: 058
     Dates: start: 202206
  2. DEVICE [Suspect]
     Active Substance: DEVICE

REACTIONS (1)
  - Abortion missed [Unknown]
